FAERS Safety Report 5764488-6 (Version None)
Quarter: 2008Q2

REPORT INFORMATION
  Report Type: 
  Country: None (occurrence: None)
  Receive Date: 20080610
  Receipt Date: 20080529
  Transmission Date: 20081010
  Serious: Yes (Other)
  Sender: FDA-Public Use
  Company Number: US-PFIZER INC-2008046427

PATIENT
  Sex: Female
  Weight: 69.9 kg

DRUGS (2)
  1. CHANTIX [Suspect]
     Indication: SMOKING CESSATION THERAPY
     Route: 048
  2. ATENOLOL [Concomitant]
     Indication: HYPERTENSION

REACTIONS (2)
  - HERPES ZOSTER [None]
  - RASH [None]
